FAERS Safety Report 4997410-0 (Version None)
Quarter: 2006Q2

REPORT INFORMATION
  Report Type: 
  Country: None (occurrence: None)
  Receive Date: 20060509
  Receipt Date: 20041109
  Transmission Date: 20061013
  Serious: Yes (Hospitalization, Other)
  Sender: FDA-Public Use
  Company Number: US-MERCK-0411USA01594

PATIENT
  Age: 71 Year
  Sex: Female
  Weight: 72 kg

DRUGS (4)
  1. VIOXX [Suspect]
     Indication: ANTIINFLAMMATORY THERAPY
     Route: 048
     Dates: start: 20010322, end: 20040401
  2. VIOXX [Suspect]
     Indication: SCIATICA
     Route: 048
     Dates: start: 20010322, end: 20040401
  3. VIOXX [Suspect]
     Route: 048
     Dates: start: 20010322, end: 20040401
  4. VIOXX [Suspect]
     Route: 048
     Dates: start: 20010322, end: 20040401

REACTIONS (36)
  - ANGINA PECTORIS [None]
  - AORTIC VALVE INCOMPETENCE [None]
  - BACK PAIN [None]
  - CARDIAC DISORDER [None]
  - CARDIAC FLUTTER [None]
  - CARDIOMEGALY [None]
  - CARDIOVASCULAR DISORDER [None]
  - CHEST DISCOMFORT [None]
  - CHEST PAIN [None]
  - CORONARY ARTERY DISEASE [None]
  - CORONARY ARTERY OCCLUSION [None]
  - CORONARY ARTERY STENOSIS [None]
  - COUGH [None]
  - DILATATION ATRIAL [None]
  - DIZZINESS [None]
  - DYSPNOEA EXERTIONAL [None]
  - ELECTROCARDIOGRAM POOR R-WAVE PROGRESSION [None]
  - ELECTROCARDIOGRAM ST-T CHANGE [None]
  - FATIGUE [None]
  - GASTROOESOPHAGEAL REFLUX DISEASE [None]
  - GENERALISED ANXIETY DISORDER [None]
  - HEART RATE INCREASED [None]
  - HEART RATE IRREGULAR [None]
  - HYPERLIPIDAEMIA [None]
  - HYPERSENSITIVITY [None]
  - INCREASED TENDENCY TO BRUISE [None]
  - MITRAL VALVE INCOMPETENCE [None]
  - MYOCARDIAL INFARCTION [None]
  - OEDEMA PERIPHERAL [None]
  - PALPITATIONS [None]
  - PLEURITIC PAIN [None]
  - POSTOPERATIVE INFECTION [None]
  - QRS AXIS ABNORMAL [None]
  - STRESS [None]
  - SYNCOPE VASOVAGAL [None]
  - TRICUSPID VALVE INCOMPETENCE [None]
